FAERS Safety Report 4713968-0 (Version None)
Quarter: 2005Q3

REPORT INFORMATION
  Report Type: 
  Country: None (occurrence: None)
  Receive Date: 20050713
  Receipt Date: 20050627
  Transmission Date: 20060218
  Serious: Yes (Other)
  Sender: FDA-Public Use
  Company Number: 2005BI008096

PATIENT
  Sex: Male

DRUGS (6)
  1. AVONEX [Suspect]
     Indication: MULTIPLE SCLEROSIS
     Dosage: 30 UG;QW; IM
     Route: 030
     Dates: start: 19991115
  2. NOVANTRONE [Concomitant]
  3. DITROPAN [Concomitant]
  4. AMITRIPTYLINE HCL [Concomitant]
  5. BACLOFEN [Concomitant]
  6. AMANTIDINE [Concomitant]

REACTIONS (4)
  - CARDIAC DISORDER [None]
  - EJECTION FRACTION DECREASED [None]
  - ELECTROCARDIOGRAM ABNORMAL [None]
  - MUSCLE INJURY [None]
